FAERS Safety Report 25924361 (Version 1)
Quarter: 2025Q4

REPORT INFORMATION
  Report Type: Spontaneous
  Country: US (occurrence: US)
  Receive Date: 20251015
  Receipt Date: 20251015
  Transmission Date: 20260118
  Serious: No
  Sender: APOTEX
  Company Number: US-APOTEX-2025AP031046

PATIENT
  Age: 99 Year
  Sex: Female

DRUGS (1)
  1. DASATINIB [Suspect]
     Active Substance: DASATINIB
     Indication: Product used for unknown indication
     Dosage: 1 DOSAGE FORM, QD
     Route: 065
     Dates: start: 2025, end: 2025

REACTIONS (2)
  - Oropharyngeal pain [Unknown]
  - Oral pain [Unknown]

NARRATIVE: CASE EVENT DATE: 20250101
